FAERS Safety Report 5939916-3 (Version None)
Quarter: 2008Q4

REPORT INFORMATION
  Report Type: 
  Country: None (occurrence: None)
  Receive Date: 20081030
  Receipt Date: 20081030
  Transmission Date: 20090506
  Serious: Yes (Other)
  Sender: FDA-Public Use
  Company Number: None

PATIENT
  Age: 33 Year
  Sex: Female
  Weight: 95.2554 kg

DRUGS (2)
  1. PRENATAL VITAMIN + DHA  1 TABLET/1 SOFTGEL WALGREENS [Suspect]
     Indication: PREGNANCY
     Dosage: 1 DAILY PO
     Route: 048
     Dates: start: 20080801, end: 20081028
  2. PRENATAL VITAMIN + DHA  1 TABLET/1 SOFTGEL WALGREENS [Suspect]
     Indication: VITAMIN SUPPLEMENTATION
     Dosage: 1 DAILY PO
     Route: 048
     Dates: start: 20080801, end: 20081028

REACTIONS (6)
  - DRUG DISPENSING ERROR [None]
  - DRUG EXPOSURE DURING PREGNANCY [None]
  - IMPAIRED WORK ABILITY [None]
  - MEDICATION ERROR [None]
  - PLACENTAL DISORDER [None]
  - VAGINAL HAEMORRHAGE [None]
